FAERS Safety Report 8534991-4 (Version None)
Quarter: 2012Q3

REPORT INFORMATION
  Report Type: 
  Country: None (occurrence: None)
  Receive Date: 20120724
  Receipt Date: 20120718
  Transmission Date: 20120928
  Serious: No
  Sender: FDA-Public Use
  Company Number: US-PFIZER INC-2012172998

PATIENT
  Sex: Male
  Weight: 123.81 kg

DRUGS (10)
  1. XANAX [Suspect]
     Dosage: 1 MG, 3X/DAY
     Dates: start: 20120101
  2. PREVACID [Concomitant]
     Dosage: UNK
  3. XANAX [Suspect]
     Dosage: TOTAL DOSE OF 3MG A DAY
     Route: 048
     Dates: start: 20120601, end: 20120101
  4. XANAX [Suspect]
     Indication: ANXIETY
     Dosage: 5 MG, 3X/DAY
     Route: 048
  5. XANAX [Suspect]
     Dosage: TOTAL DOSE OF 5MG A DAY
     Route: 048
     Dates: end: 20120601
  6. BOTOX [Concomitant]
     Indication: MUSCLE TWITCHING
     Dosage: UNK
  7. PAXIL [Concomitant]
     Indication: OBSESSIVE-COMPULSIVE DISORDER
     Dosage: 40MG TWO TABLETS DAILY TOGETHER IN MORNING
     Route: 048
  8. ZOCOR [Concomitant]
     Dosage: UNK
  9. SINGULAIR [Concomitant]
     Dosage: UNK
  10. MAGNESIUM OXIDE [Concomitant]
     Dosage: UNK

REACTIONS (9)
  - NERVOUSNESS [None]
  - DRY MOUTH [None]
  - LIVER FUNCTION TEST ABNORMAL [None]
  - DYSPHAGIA [None]
  - ANXIETY [None]
  - TENSION [None]
  - DYSPNOEA [None]
  - MUSCLE TWITCHING [None]
  - DRUG INEFFECTIVE [None]
